FAERS Safety Report 11857387 (Version 1)
Quarter: 2015Q4

REPORT INFORMATION
  Report Type: Spontaneous
  Country: US (occurrence: None)
  Receive Date: 20151221
  Receipt Date: 20151221
  Transmission Date: 20160305
  Serious: Yes (Disabling)
  Sender: FDA-Public Use
  Company Number: None

PATIENT
  Age: 65 Year
  Sex: Female
  Weight: 55.34 kg

DRUGS (11)
  1. PROBIOTIC [Concomitant]
     Active Substance: PROBIOTICS NOS
  2. OMEGA 3 + 6 [Concomitant]
  3. LEXAPRO [Concomitant]
     Active Substance: ESCITALOPRAM OXALATE
  4. CALCIUM [Concomitant]
     Active Substance: CALCIUM
  5. LEVOFLOXACIN 750MG / DAILY X 7 DAYS [Suspect]
     Active Substance: LEVOFLOXACIN
     Indication: PNEUMONIA
     Dosage: 1 PILL  DAILY  P.O.
     Route: 048
     Dates: start: 20151017, end: 20151022
  6. WELLBUTRIN [Concomitant]
     Active Substance: BUPROPION HYDROCHLORIDE
  7. ASA [Concomitant]
     Active Substance: ASPIRIN
  8. DILTIZEM [Concomitant]
  9. GARLIC. [Concomitant]
     Active Substance: GARLIC
  10. HERBAL TEAS [Concomitant]
     Active Substance: HERBALS
  11. MULTIVIT [Concomitant]
     Active Substance: VITAMINS

REACTIONS (6)
  - Fatigue [None]
  - Drug ineffective [None]
  - Musculoskeletal pain [None]
  - Asthenia [None]
  - Pain in extremity [None]
  - Pain [None]

NARRATIVE: CASE EVENT DATE: 20151019
